FAERS Safety Report 6566815-9 (Version None)
Quarter: 2010Q1

REPORT INFORMATION
  Report Type: 
  Country: None (occurrence: None)
  Receive Date: 20100202
  Receipt Date: 20100125
  Transmission Date: 20100710
  Serious: Yes (Hospitalization)
  Sender: FDA-Public Use
  Company Number: A0804181A

PATIENT
  Age: 65 Year
  Sex: Female

DRUGS (2)
  1. AVANDIA [Suspect]
     Dosage: 4MG TWICE PER DAY
     Route: 048
     Dates: start: 20041121, end: 20070601
  2. AVANDAMET [Suspect]
     Route: 048
     Dates: start: 20050121, end: 20050325

REACTIONS (4)
  - AMNESIA [None]
  - CORONARY ARTERY DISEASE [None]
  - DISABILITY [None]
  - MYOCARDIAL INFARCTION [None]
